FAERS Safety Report 4338175-5 (Version None)
Quarter: 2004Q1

REPORT INFORMATION
  Report Type: 
  Country: None (occurrence: None)
  Receive Date: 20040329
  Receipt Date: 20040210
  Transmission Date: 20041129
  Serious: No
  Sender: FDA-Public Use
  Company Number: USA040258960

PATIENT
  Age: 9 Year
  Sex: Male
  Weight: 44 kg

DRUGS (2)
  1. STRATTERA [Suspect]
     Dosage: 75 MG/IN THE MORNING
     Dates: start: 20040101
  2. XANAX [Concomitant]

REACTIONS (4)
  - DYSPEPSIA [None]
  - PRESCRIBED OVERDOSE [None]
  - VOMITING [None]
  - WEIGHT DECREASED [None]
